FAERS Safety Report 25551071 (Version 1)
Quarter: 2025Q3

REPORT INFORMATION
  Report Type: Spontaneous
  Country: US (occurrence: US)
  Receive Date: 20250714
  Receipt Date: 20250714
  Transmission Date: 20251020
  Serious: No
  Sender: INTRA-CELLULAR THERAPIES
  Company Number: US-INTRA-CELLULAR THERAPIES, INC.-2025ICT00470

PATIENT
  Sex: Female

DRUGS (4)
  1. CAPLYTA [Suspect]
     Active Substance: LUMATEPERONE
     Indication: Bipolar disorder
     Dates: start: 20241127, end: 20241211
  2. CAPLYTA [Suspect]
     Active Substance: LUMATEPERONE
     Indication: Agitation
     Dates: start: 20241212
  3. UNSPECIIFED ANTIDEPRESSANTS [Concomitant]
  4. UNSPECIIFED ANTISEIZURE MEDICATION [Concomitant]

REACTIONS (6)
  - Mania [Unknown]
  - Weight decreased [Not Recovered/Not Resolved]
  - Nasopharyngitis [Unknown]
  - Oral herpes [Unknown]
  - Blood test abnormal [Unknown]
  - Therapeutic response unexpected [Not Recovered/Not Resolved]

NARRATIVE: CASE EVENT DATE: 20240101
